FAERS Safety Report 18199756 (Version 1)
Quarter: 2020Q3

REPORT INFORMATION
  Report Type: Spontaneous
  Country: FR (occurrence: FR)
  Receive Date: 20200826
  Receipt Date: 20200826
  Transmission Date: 20201103
  Serious: Yes (Hospitalization, Other)
  Sender: FDA-Public Use
  Company Number: FR-BRISTOL-MYERS SQUIBB COMPANY-BMS-2020-066910

PATIENT
  Age: 69 Year
  Sex: Male

DRUGS (1)
  1. OPDIVO [Suspect]
     Active Substance: NIVOLUMAB
     Indication: NEOPLASM MALIGNANT
     Dosage: 240 MILGIRAM, Q15D
     Route: 042
     Dates: start: 20200605, end: 20200703

REACTIONS (3)
  - Tumour hyperprogression [Not Recovered/Not Resolved]
  - Off label use [Unknown]
  - Dysphagia [Not Recovered/Not Resolved]

NARRATIVE: CASE EVENT DATE: 20200717
